FAERS Safety Report 6738825-X (Version None)
Quarter: 2010Q2

REPORT INFORMATION
  Report Type: 
  Country: None (occurrence: None)
  Receive Date: 20100520
  Receipt Date: 20100503
  Transmission Date: 20101027
  Serious: Yes (Other)
  Sender: FDA-Public Use
  Company Number: 020753146A

PATIENT
  Sex: Female

DRUGS (1)
  1. LADY SPEED STICK ANTIPERSPIRANT UNSPECIFIED [Suspect]
     Dosage: TOPICAL
     Route: 061

REACTIONS (1)
  - BREAST CANCER FEMALE [None]
